FAERS Safety Report 22687952 (Version 3)
Quarter: 2025Q3

REPORT INFORMATION
  Report Type: Spontaneous
  Country: US (occurrence: US)
  Receive Date: 20230710
  Receipt Date: 20250819
  Transmission Date: 20251021
  Serious: Yes (Life-Threatening, Hospitalization, Other)
  Sender: PFIZER
  Company Number: US-PFIZER INC-PV202300117376

PATIENT
  Age: 64 Year
  Sex: Female

DRUGS (1)
  1. HYDROCORTISONE ACETATE [Suspect]
     Active Substance: HYDROCORTISONE ACETATE
     Indication: Chronic fatigue syndrome
     Dosage: 2 SQUIRTS OF OTC 1% TWICE DAILY,ALLEGEDLY AMOUNTING TO A TOTAL OF 3 TUBES OF 1 OZ EACH
     Route: 048

REACTIONS (6)
  - Hypokalaemia [Recovering/Resolving]
  - Rhabdomyolysis [Unknown]
  - Hyperadrenocorticism [Recovering/Resolving]
  - Hypertension [Recovered/Resolved]
  - Blood corticotrophin decreased [Recovering/Resolving]
  - Intentional product use issue [Unknown]
